FAERS Safety Report 9908401 (Version 2)
Quarter: 2014Q1

REPORT INFORMATION
  Report Type: Spontaneous
  Country: US (occurrence: US)
  Receive Date: 20140219
  Receipt Date: 20140219
  Transmission Date: 20141002
  Serious: No
  Sender: FDA-Public Use
  Company Number: US-TEVA-421956USA

PATIENT
  Sex: Female

DRUGS (2)
  1. DILTIAZEM [Suspect]
     Indication: HYPERTENSION
     Dates: start: 20130623, end: 201307
  2. VITAMINS [Concomitant]

REACTIONS (3)
  - Swelling face [Unknown]
  - Eye swelling [Unknown]
  - Erythema [Unknown]
